FAERS Safety Report 23365181 (Version 1)
Quarter: 2024Q1

REPORT INFORMATION
  Report Type: Spontaneous
  Country: JP (occurrence: JP)
  Receive Date: 20240104
  Receipt Date: 20240104
  Transmission Date: 20240409
  Serious: Yes (Other)
  Sender: FDA-Public Use
  Company Number: JP-SUNPHARMA-2023RR-425632AA

PATIENT
  Age: 73 Year
  Sex: Male

DRUGS (7)
  1. OXALIPLATIN [Suspect]
     Active Substance: OXALIPLATIN
     Indication: Gastric cancer
     Dosage: 120 MILLIGRAM, DAILY
     Route: 065
     Dates: start: 201702
  2. OXALIPLATIN [Suspect]
     Active Substance: OXALIPLATIN
     Dosage: 100 MILLIGRAM
     Route: 065
     Dates: start: 201702
  3. PACLITAXEL [Suspect]
     Active Substance: PACLITAXEL
     Indication: Gastric cancer
     Dosage: UNK
     Route: 065
  4. IRINOTECAN [Suspect]
     Active Substance: IRINOTECAN
     Indication: Gastric cancer
     Dosage: UNK
     Route: 065
  5. TEGAFUR [Suspect]
     Active Substance: TEGAFUR
     Indication: Gastric cancer
     Dosage: 120 MILLIGRAM, DAILY
     Route: 065
  6. GIMERACIL [Suspect]
     Active Substance: GIMERACIL
     Indication: Gastric cancer
     Dosage: 120 MILLIGRAM, DAILY
     Route: 065
  7. OTERACIL [Suspect]
     Active Substance: OTERACIL
     Indication: Gastric cancer
     Dosage: 120 MILLIGRAM, DAILY
     Route: 065

REACTIONS (2)
  - Generalised tonic-clonic seizure [Unknown]
  - Disease progression [Unknown]

NARRATIVE: CASE EVENT DATE: 20170401
